FAERS Safety Report 15473890 (Version 4)
Quarter: 2018Q4

REPORT INFORMATION
  Report Type: Report from Study
  Country: US (occurrence: US)
  Receive Date: 20181008
  Receipt Date: 20181031
  Transmission Date: 20190205
  Serious: Yes (Hospitalization, Other)
  Sender: FDA-Public Use
  Company Number: US-GILEAD-2018-0366292

PATIENT
  Age: 70 Year
  Sex: Male

DRUGS (3)
  1. TYVASO [Concomitant]
     Active Substance: TREPROSTINIL
  2. AMBRISENTAN [Suspect]
     Active Substance: AMBRISENTAN
     Indication: SCLERODERMA
     Dosage: 10 MG, QD
     Route: 065
     Dates: start: 20180501
  3. ADCIRCA [Concomitant]
     Active Substance: TADALAFIL

REACTIONS (15)
  - Chronic kidney disease [Not Recovered/Not Resolved]
  - Generalised oedema [Unknown]
  - Headache [Not Recovered/Not Resolved]
  - Electrolyte imbalance [Unknown]
  - Right ventricular failure [Not Recovered/Not Resolved]
  - Scrotal swelling [Not Recovered/Not Resolved]
  - Concussion [Unknown]
  - Mental status changes [Unknown]
  - Flushing [Not Recovered/Not Resolved]
  - Lumbar vertebral fracture [Unknown]
  - Fall [Recovered/Resolved]
  - Localised oedema [Not Recovered/Not Resolved]
  - Peripheral swelling [Not Recovered/Not Resolved]
  - Diarrhoea [Not Recovered/Not Resolved]
  - Jugular vein distension [Not Recovered/Not Resolved]
